FAERS Safety Report 14519497 (Version 1)
Quarter: 2018Q1

REPORT INFORMATION
  Report Type: Spontaneous
  Country: US (occurrence: US)
  Receive Date: 20180209
  Receipt Date: 20180209
  Transmission Date: 20180509
  Serious: Yes (Other)
  Sender: FDA-Public Use
  Company Number: None

PATIENT
  Age: 54 Year
  Sex: Female
  Weight: 65.25 kg

DRUGS (11)
  1. METHENAMINE HIPPURATE. [Suspect]
     Active Substance: METHENAMINE HIPPURATE
     Indication: INFECTION PROPHYLAXIS
     Route: 048
     Dates: start: 20180122, end: 20180127
  2. OMEPRAZOLE. [Concomitant]
     Active Substance: OMEPRAZOLE
  3. VITAMIN C [Concomitant]
     Active Substance: ASCORBIC ACID
  4. ESCITALOPRAM [Concomitant]
     Active Substance: ESCITALOPRAM OXALATE
  5. METHENAMINE HIPPURATE. [Suspect]
     Active Substance: METHENAMINE HIPPURATE
     Indication: BLADDER DISORDER
     Route: 048
     Dates: start: 20180122, end: 20180127
  6. ESTRADIOL TRANSDERMAL SYSTEM [Concomitant]
     Active Substance: ESTRADIOL
  7. ALPRAZOLAM. [Concomitant]
     Active Substance: ALPRAZOLAM
  8. METHENAMINE HIPPURATE. [Suspect]
     Active Substance: METHENAMINE HIPPURATE
     Indication: INFECTION PROPHYLAXIS
     Route: 048
     Dates: start: 20180108, end: 20180116
  9. METOPROLOL SUCCINATE. [Concomitant]
     Active Substance: METOPROLOL SUCCINATE
  10. METHENAMINE HIPPURATE. [Suspect]
     Active Substance: METHENAMINE HIPPURATE
     Indication: BLADDER DISORDER
     Route: 048
     Dates: start: 20180108, end: 20180116
  11. BUPROPION XL [Concomitant]
     Active Substance: BUPROPION

REACTIONS (10)
  - Blood alkaline phosphatase increased [None]
  - Chills [None]
  - Jaundice [None]
  - Transaminases increased [None]
  - Pyrexia [None]
  - Nausea [None]
  - Pruritus [None]
  - Eosinophilia [None]
  - Alanine aminotransferase increased [None]
  - Pain [None]

NARRATIVE: CASE EVENT DATE: 20180122
